FAERS Safety Report 18664180 (Version 2)
Quarter: 2021Q1

REPORT INFORMATION
  Report Type: Other
  Country: FR (occurrence: FR)
  Receive Date: 20201225
  Receipt Date: 20210104
  Transmission Date: 20210419
  Serious: Yes (Hospitalization, Other)
  Sender: FDA-Public Use
  Company Number: FR-ASTELLAS-2020US045171

PATIENT
  Age: 7 Year
  Sex: Female
  Weight: 21 kg

DRUGS (2)
  1. MYCAMINE [Suspect]
     Active Substance: MICAFUNGIN SODIUM
     Indication: CANDIDA INFECTION
     Route: 042
     Dates: start: 202009, end: 20200923
  2. JAKAVI [RUXOLITINIB] [Suspect]
     Active Substance: RUXOLITINIB
     Indication: GRAFT VERSUS HOST DISEASE
     Route: 048
     Dates: start: 202009, end: 20200923

REACTIONS (6)
  - Pancytopenia [Recovered/Resolved]
  - Cholestasis [Recovered/Resolved]
  - Hepatocellular injury [Recovered/Resolved]
  - Arthralgia [Recovered/Resolved]
  - Diarrhoea [Recovering/Resolving]
  - Inappropriate schedule of product administration [Unknown]

NARRATIVE: CASE EVENT DATE: 202009
